FAERS Safety Report 7480001-X (Version None)
Quarter: 2011Q2

REPORT INFORMATION
  Report Type: 
  Country: None (occurrence: None)
  Receive Date: 20110516
  Receipt Date: 20110506
  Transmission Date: 20111010
  Serious: Yes (Other)
  Sender: FDA-Public Use
  Company Number: US-BIOGENIDEC-2011BI017288

PATIENT
  Age: 68 Year
  Sex: Male

DRUGS (1)
  1. AVONEX [Suspect]
     Indication: MULTIPLE SCLEROSIS
     Route: 030
     Dates: start: 20000620, end: 20110329

REACTIONS (3)
  - METASTASES TO ADRENALS [None]
  - HEPATIC NEOPLASM MALIGNANT [None]
  - PANCREATIC CARCINOMA [None]
